FAERS Safety Report 11491720 (Version 1)
Quarter: 2015Q3

REPORT INFORMATION
  Report Type: Spontaneous
  Country: US (occurrence: None)
  Receive Date: 20150909
  Receipt Date: 20150909
  Transmission Date: 20151125
  Serious: Yes (Disabling)
  Sender: FDA-Public Use
  Company Number: None

PATIENT
  Age: 4 Year
  Sex: Male
  Weight: 19.5 kg

DRUGS (3)
  1. CLOBAZAM [Suspect]
     Active Substance: CLOBAZAM
     Indication: LENNOX-GASTAUT SYNDROME
     Dosage: AROUND 2 MONTHS AND HALF
     Route: 048
  2. VITAMINS [Concomitant]
     Active Substance: VITAMINS
  3. DIAZEPAM. [Concomitant]
     Active Substance: DIAZEPAM

REACTIONS (8)
  - Drooling [None]
  - Fall [None]
  - Dizziness [None]
  - Fatigue [None]
  - Somnolence [None]
  - Balance disorder [None]
  - Asthenia [None]
  - Irritability [None]

NARRATIVE: CASE EVENT DATE: 20150814
